FAERS Safety Report 7571110-5 (Version None)
Quarter: 2011Q2

REPORT INFORMATION
  Report Type: 
  Country: None (occurrence: None)
  Receive Date: 20110624
  Receipt Date: 20110616
  Transmission Date: 20111010
  Serious: Yes (Hospitalization, Other)
  Sender: FDA-Public Use
  Company Number: FR-ACTELION-A-CH2010-36885

PATIENT
  Sex: Female

DRUGS (12)
  1. ATARAX [Concomitant]
  2. FERROUS SULFATE TAB [Concomitant]
  3. OXYGEN [Concomitant]
  4. TRACLEER [Suspect]
     Indication: PULMONARY ARTERIAL HYPERTENSION
     Dosage: 62.5 MG, BID
     Route: 048
     Dates: start: 20090331, end: 20100303
  5. SILDENAFIL CITRATE [Concomitant]
     Dosage: UNK
     Dates: start: 20090301
  6. LASIX [Concomitant]
  7. POTASSIUM CHLORIDE [Concomitant]
  8. MINIRIN [Concomitant]
  9. MAGNE-B6 [Concomitant]
  10. PREVISCAN [Concomitant]
  11. EFFEXOR [Concomitant]
  12. RABEPRAZOLE SODIUM [Concomitant]

REACTIONS (16)
  - AUTOIMMUNE HEPATITIS [None]
  - ALANINE AMINOTRANSFERASE INCREASED [None]
  - LIVER FUNCTION TEST ABNORMAL [None]
  - ASPARTATE AMINOTRANSFERASE INCREASED [None]
  - GAMMA-GLUTAMYLTRANSFERASE INCREASED [None]
  - CHOLESTASIS [None]
  - BIOPSY LIVER [None]
  - CHOLANGITIS [None]
  - JAUNDICE [None]
  - BLOOD BILIRUBIN INCREASED [None]
  - HEPATITIS VIRAL [None]
  - ASTHENIA [None]
  - HEPATIC ENZYME INCREASED [None]
  - OVERLAP SYNDROME [None]
  - CYTOLYTIC HEPATITIS [None]
  - NAUSEA [None]
